FAERS Safety Report 14657810 (Version 1)
Quarter: 2018Q1

REPORT INFORMATION
  Report Type: Spontaneous
  Country: FR (occurrence: FR)
  Receive Date: 20180320
  Receipt Date: 20180320
  Transmission Date: 20180509
  Serious: Yes (Hospitalization)
  Sender: FDA-Public Use
  Company Number: FR-SUN PHARMACEUTICAL INDUSTRIES LTD-2018RR-167099

PATIENT
  Age: 72 Year
  Sex: Female
  Weight: 95 kg

DRUGS (11)
  1. COAPROVEL 300 MG/25 MG, COMPRIME PELLICULE [Concomitant]
     Active Substance: HYDROCHLOROTHIAZIDE\IRBESARTAN
     Indication: PRODUCT USED FOR UNKNOWN INDICATION
     Dosage: 1 DF, UNK
     Route: 048
  2. ZOPICLONE [Concomitant]
     Active Substance: ZOPICLONE
     Indication: PRODUCT USED FOR UNKNOWN INDICATION
     Dosage: 7.5 MG, UNK
     Route: 048
  3. MIANSERINE (CHLORHYDRATE DE) [Concomitant]
     Active Substance: MIANSERIN HYDROCHLORIDE
     Indication: PRODUCT USED FOR UNKNOWN INDICATION
     Dosage: 30 MG, UNK
     Route: 048
  4. FUROSEMIDE. [Concomitant]
     Active Substance: FUROSEMIDE
     Indication: PRODUCT USED FOR UNKNOWN INDICATION
     Dosage: 40 MG, UNK
     Route: 048
  5. ATENOLOL. [Suspect]
     Active Substance: ATENOLOL
     Indication: SUICIDE ATTEMPT
     Dosage: 2250 MG, UNK
     Route: 048
  6. LEXOMIL ROCHE COMPRIME BAGUETTE, COMPRIME QUADRISECABLE [Concomitant]
     Active Substance: BROMAZEPAM
     Indication: PRODUCT USED FOR UNKNOWN INDICATION
     Dosage: 1.25 MG, UNK
     Route: 048
  7. DOLIPRANE [Concomitant]
     Active Substance: ACETAMINOPHEN
     Indication: PRODUCT USED FOR UNKNOWN INDICATION
     Dosage: 3000 MG, UNK
     Route: 048
  8. HYPERIUM 1 MG, COMPRIME [Suspect]
     Active Substance: RILMENIDINE PHOSPHATE
     Indication: SUICIDE ATTEMPT
     Dosage: 90 MG, UNK
     Route: 048
  9. ESOMEPRAZOLE [Concomitant]
     Active Substance: ESOMEPRAZOLE
     Indication: PRODUCT USED FOR UNKNOWN INDICATION
     Dosage: 20 MG, UNK
     Route: 048
  10. LEVOTHYROX 50 MICROGRAMMES, COMPRIME SECABLE [Concomitant]
     Active Substance: LEVOTHYROXINE SODIUM
     Indication: PRODUCT USED FOR UNKNOWN INDICATION
     Dosage: 1 DF, UNK
     Route: 048
  11. LEXOMIL ROCHE COMPRIME BAGUETTE, COMPRIME QUADRISECABLE [Concomitant]
     Active Substance: BROMAZEPAM
     Dosage: 3 MG, UNK
     Route: 048

REACTIONS (7)
  - Electrocardiogram repolarisation abnormality [Recovered/Resolved]
  - Bradycardia [Recovered/Resolved]
  - Hypokalaemia [Recovered/Resolved]
  - Haemodynamic instability [Recovered/Resolved]
  - Ventricular tachycardia [Recovered/Resolved]
  - Electrocardiogram QT prolonged [Recovered/Resolved]
  - Somnolence [Recovered/Resolved]

NARRATIVE: CASE EVENT DATE: 20171224
